FAERS Safety Report 14209662 (Version 2)
Quarter: 2017Q4

REPORT INFORMATION
  Report Type: Spontaneous
  Country: US (occurrence: US)
  Receive Date: 20171121
  Receipt Date: 20171127
  Transmission Date: 20180321
  Serious: Yes (Other)
  Sender: FDA-Public Use
  Company Number: US-PFIZER INC-2017495092

PATIENT
  Age: 71 Year
  Sex: Female
  Weight: 62.6 kg

DRUGS (6)
  1. AVAPRO [Concomitant]
     Active Substance: IRBESARTAN
     Indication: BLOOD PRESSURE ABNORMAL
     Dosage: 0.75 MG, 1X/DAY
     Route: 048
  2. LEVOTHYROXINE. [Concomitant]
     Active Substance: LEVOTHYROXINE
     Indication: GOITRE
     Dosage: 0.100 MG, 1X/DAY
     Route: 048
  3. MISOPROSTOL. [Suspect]
     Active Substance: MISOPROSTOL
     Dosage: 100 UG, 4X/DAY
     Route: 048
     Dates: start: 20170621, end: 201708
  4. CARAFATE [Suspect]
     Active Substance: SUCRALFATE
     Indication: GASTRIC DISORDER
     Dosage: UNK
  5. MISOPROSTOL. [Suspect]
     Active Substance: MISOPROSTOL
     Indication: GASTRIC DISORDER
     Dosage: 100 UG, 3X/DAY
  6. HYDROCHLOROTHIAZIDE. [Concomitant]
     Active Substance: HYDROCHLOROTHIAZIDE
     Indication: FLUID RETENTION
     Dosage: 12.5 MG, 1X/DAY
     Route: 048

REACTIONS (7)
  - Alopecia [Recovering/Resolving]
  - Dyspnoea [Recovering/Resolving]
  - Blister [Recovering/Resolving]
  - Atrial thrombosis [Unknown]
  - Abdominal pain upper [Recovered/Resolved]
  - Thrombosis [Recovering/Resolving]
  - Pulmonary thrombosis [Unknown]

NARRATIVE: CASE EVENT DATE: 201706
